FAERS Safety Report 8584576-9 (Version None)
Quarter: 2012Q3

REPORT INFORMATION
  Report Type: 
  Country: None (occurrence: None)
  Receive Date: 20120730
  Receipt Date: 20120720
  Transmission Date: 20120928
  Serious: Yes (Hospitalization)
  Sender: FDA-Public Use
  Company Number: SP05917

PATIENT
  Age: 51 Year
  Sex: Female

DRUGS (1)
  1. RELISTOR [Suspect]
     Indication: ABDOMINAL PAIN
     Dosage: (12 MG,ONCE),SUBCUTANEOUS
     Route: 058
     Dates: start: 20120719, end: 20120719

REACTIONS (1)
  - BLADDER PERFORATION [None]
